FAERS Safety Report 23906333 (Version 1)
Quarter: 2024Q2

REPORT INFORMATION
  Report Type: Spontaneous
  Country: SE (occurrence: None)
  Receive Date: 20240528
  Receipt Date: 20240528
  Transmission Date: 20240715
  Serious: Yes (Hospitalization)
  Sender: FDA-Public Use
  Company Number: 2024A121711

PATIENT
  Age: 70 Year
  Sex: Male

DRUGS (1)
  1. DAPAGLIFLOZIN [Suspect]
     Active Substance: DAPAGLIFLOZIN
     Indication: Type 2 diabetes mellitus
     Route: 048
     Dates: start: 20200115, end: 20240426

REACTIONS (5)
  - Epididymitis [Recovered/Resolved with Sequelae]
  - Testicular necrosis [Recovered/Resolved with Sequelae]
  - Testicular abscess [Recovered/Resolved with Sequelae]
  - Orchidectomy [Recovered/Resolved with Sequelae]
  - Orchitis [Recovered/Resolved with Sequelae]

NARRATIVE: CASE EVENT DATE: 20240416
